FAERS Safety Report 9056475 (Version 3)
Quarter: 2013Q2

REPORT INFORMATION
  Report Type: Spontaneous
  Country: JP (occurrence: JP)
  Receive Date: 20130204
  Receipt Date: 20130401
  Transmission Date: 20140414
  Serious: Yes (Life-Threatening, Hospitalization, Other)
  Sender: FDA-Public Use
  Company Number: JP-AMGEN-JPNSP2013006609

PATIENT
  Age: 55 Year
  Sex: Female

DRUGS (14)
  1. ENBREL [Suspect]
     Indication: PRODUCT USED FOR UNKNOWN INDICATION
     Dosage: 50 MG, WEEKLY
     Dates: start: 200707
  2. RHEUMATREX [Suspect]
     Indication: RHEUMATOID ARTHRITIS
     Dosage: 3 DF, 2X/WEEK
     Route: 048
     Dates: start: 20030110, end: 20110630
  3. METHOTREXATE SODIUM [Suspect]
     Dosage: 3 TABLETS 3  TIMES WEEKLY
     Route: 048
     Dates: start: 20110701
  4. ADALAT CR [Concomitant]
     Indication: HYPERTENSION
     Dosage: 1 DF, 1X/DAY
     Route: 048
     Dates: start: 20060428
  5. PREDONINE                          /00016201/ [Concomitant]
     Indication: RHEUMATOID ARTHRITIS
     Dosage: 30 MG, 1X/DAY
     Route: 048
     Dates: start: 20041007, end: 20051120
  6. PREDONINE                          /00016201/ [Concomitant]
     Dosage: 20 MG, 1X/DAY
     Route: 048
     Dates: start: 20071101
  7. LOXONIN [Concomitant]
     Indication: RHEUMATOID ARTHRITIS
     Dosage: 1 DF, 3X/DAY
     Route: 048
     Dates: start: 20030110, end: 20071030
  8. SELBEX [Concomitant]
     Indication: GASTRITIS
     Dosage: 1 DF, 3X/DAY
     Route: 048
     Dates: start: 20051114
  9. P MAGEN [Concomitant]
     Indication: GASTRITIS
     Dosage: 1.5 G, 3X/DAY
     Route: 048
     Dates: start: 20051114
  10. FOLIAMIN [Concomitant]
     Indication: RHEUMATOID ARTHRITIS
     Dosage: 1 DF, WEEKLY
     Route: 048
     Dates: start: 20061129
  11. ALFAROL [Concomitant]
     Indication: OSTEOPOROSIS
     Dosage: 1 DF, 1X/DAY
     Route: 048
     Dates: start: 20080118, end: 20120807
  12. EDIROL [Concomitant]
     Indication: RHEUMATOID ARTHRITIS
     Dosage: UNK
     Route: 048
     Dates: start: 20120808
  13. PELEX                              /00413001/ [Concomitant]
     Indication: NASOPHARYNGITIS
     Dosage: 1 G, 3X/DAY
     Route: 048
  14. CELECOXIB [Concomitant]
     Indication: RHEUMATOID ARTHRITIS
     Dosage: 1 DF, 3X/DAY
     Route: 048
     Dates: start: 20110513, end: 20110520

REACTIONS (2)
  - Bladder cancer [Not Recovered/Not Resolved]
  - Proteinuria [Recovered/Resolved]
